FAERS Safety Report 8574812-7 (Version None)
Quarter: 2012Q3

REPORT INFORMATION
  Report Type: 
  Country: None (occurrence: None)
  Receive Date: 20120807
  Receipt Date: 20101122
  Transmission Date: 20120928
  Serious: Yes (Death, Other)
  Sender: FDA-Public Use
  Company Number: DE-CELGENEUS-062-21880-12060202

PATIENT
  Age: 79 Year
  Sex: Male
  Weight: 85 kg

DRUGS (4)
  1. HEPARIN SODIUM [Concomitant]
     Indication: ANTICOAGULANT THERAPY
     Route: 065
  2. DEXAMETHASONE [Suspect]
     Indication: MULTIPLE MYELOMA
     Route: 065
     Dates: start: 20100715, end: 20100906
  3. BISPHOSPHONATES [Concomitant]
     Route: 065
  4. REVLIMID [Suspect]
     Indication: MULTIPLE MYELOMA
     Route: 048
     Dates: start: 20100715, end: 20100906

REACTIONS (6)
  - MULTIPLE MYELOMA [None]
  - LEUKOPENIA [None]
  - ANAEMIA [None]
  - GRANULOCYTOPENIA [None]
  - NAUSEA [None]
  - GENERAL PHYSICAL HEALTH DETERIORATION [None]
